FAERS Safety Report 25257710 (Version 1)
Quarter: 2025Q2

REPORT INFORMATION
  Report Type: Spontaneous
  Country: US (occurrence: None)
  Receive Date: 20250430
  Receipt Date: 20250430
  Transmission Date: 20250717
  Serious: Yes (Hospitalization)
  Sender: INCYTE
  Company Number: US-INCYTE CORPORATION-2025IN004507

PATIENT

DRUGS (2)
  1. JAKAFI [Suspect]
     Active Substance: RUXOLITINIB
     Indication: Chronic lymphocytic leukaemia
     Dosage: 20 MILLIGRAM, BID
  2. NIVESTYM [Interacting]
     Active Substance: FILGRASTIM-AAFI
     Route: 065

REACTIONS (4)
  - Infection [Unknown]
  - Neutrophil count decreased [Unknown]
  - Inhibitory drug interaction [Unknown]
  - Off label use [Unknown]
